FAERS Safety Report 4907155-0 (Version None)
Quarter: 2006Q1

REPORT INFORMATION
  Report Type: 
  Country: None (occurrence: None)
  Receive Date: 20060206
  Receipt Date: 20050819
  Transmission Date: 20060701
  Serious: Yes (Hospitalization)
  Sender: FDA-Public Use
  Company Number: JPKYO-S-20060002 - V001

PATIENT
  Age: 65 Year
  Sex: Male

DRUGS (4)
  1. NAVELBINE (VINORELBINE)SOLUTION FOR INJECTION [Suspect]
     Indication: LUNG NEOPLASM MALIGNANT
     Route: 042
     Dates: start: 20050528, end: 20050528
  2. NAVELBINE (VINORELBINE)SOLUTION FOR INJECTION [Suspect]
     Indication: LUNG NEOPLASM MALIGNANT
     Route: 042
     Dates: start: 20050620, end: 20050620
  3. GEMZAR [Suspect]
     Indication: LUNG NEOPLASM MALIGNANT
     Route: 042
     Dates: start: 20050528, end: 20050528
  4. GEMZAR [Suspect]
     Indication: LUNG NEOPLASM MALIGNANT
     Route: 042
     Dates: start: 20050620, end: 20050620

REACTIONS (4)
  - CHOLANGITIS [None]
  - HEPATIC FUNCTION ABNORMAL [None]
  - PYREXIA [None]
  - THROMBOCYTOPENIA [None]
